FAERS Safety Report 14573910 (Version 1)
Quarter: 2018Q1

REPORT INFORMATION
  Report Type: Report from Study
  Country: CA (occurrence: CA)
  Receive Date: 20180226
  Receipt Date: 20180226
  Transmission Date: 20180509
  Serious: Yes (Hospitalization, Other)
  Sender: FDA-Public Use
  Company Number: CA-MYLANLABS-2018M1013405

PATIENT
  Age: 14 Year
  Sex: Female

DRUGS (2)
  1. EPIPEN [Suspect]
     Active Substance: EPINEPHRINE
     Dosage: UNK
     Route: 030
  2. EPIPEN [Suspect]
     Active Substance: EPINEPHRINE
     Indication: ANAPHYLACTIC REACTION
     Route: 030

REACTIONS (2)
  - Device ineffective [Recovered/Resolved]
  - Intentional product use issue [Recovered/Resolved]
